FAERS Safety Report 13229990 (Version 3)
Quarter: 2017Q2

REPORT INFORMATION
  Report Type: Spontaneous
  Country: US (occurrence: US)
  Receive Date: 20170214
  Receipt Date: 20170428
  Transmission Date: 20170830
  Serious: Yes (Hospitalization, Other)
  Sender: FDA-Public Use
  Company Number: US-AUROBINDO-AUR-APL-2017-29588

PATIENT
  Age: 7 Decade
  Sex: Female

DRUGS (4)
  1. RISPERIDONE. [Suspect]
     Active Substance: RISPERIDONE
     Indication: MAJOR DEPRESSION
     Dosage: UNK
     Route: 065
  2. SERTRALINE [Concomitant]
     Active Substance: SERTRALINE HYDROCHLORIDE
     Indication: MAJOR DEPRESSION
     Dosage: UNK
     Route: 065
  3. PALIPERIDONE. [Suspect]
     Active Substance: PALIPERIDONE
     Indication: MAJOR DEPRESSION
     Dosage: UNK
     Route: 065
  4. OLANZAPINE. [Suspect]
     Active Substance: OLANZAPINE
     Indication: MAJOR DEPRESSION
     Dosage: UNK
     Route: 065

REACTIONS (10)
  - Hyporeflexia [Recovered/Resolved]
  - Neuroleptic malignant syndrome [Recovering/Resolving]
  - Ocular icterus [Recovered/Resolved]
  - Encephalopathy [Recovered/Resolved]
  - Catatonia [Recovered/Resolved]
  - Pyrexia [Recovered/Resolved]
  - Mental disorder [Recovered/Resolved]
  - Condition aggravated [Recovered/Resolved]
  - Tachycardia [Recovered/Resolved]
  - Blood creatine phosphokinase increased [Recovered/Resolved]
